FAERS Safety Report 4543023-4 (Version None)
Quarter: 2005Q1

REPORT INFORMATION
  Report Type: 
  Country: None (occurrence: None)
  Receive Date: 20050103
  Receipt Date: 20041222
  Transmission Date: 20050727
  Serious: Yes (Hospitalization)
  Sender: FDA-Public Use
  Company Number: NSADSS2002017773

PATIENT
  Sex: Female
  Weight: 49 kg

DRUGS (3)
  1. REMICADE [Suspect]
     Indication: CROHN'S DISEASE
     Route: 041
     Dates: start: 20020502
  2. PENTASA [Concomitant]
     Indication: CROHN'S DISEASE
     Route: 049
  3. PREDNISONE [Concomitant]
     Route: 049
     Dates: start: 20020412

REACTIONS (5)
  - ALANINE AMINOTRANSFERASE INCREASED [None]
  - ANTINUCLEAR ANTIBODY POSITIVE [None]
  - AUTOIMMUNE DISORDER [None]
  - FEBRILE INFECTION [None]
  - HEPATIC ENZYME INCREASED [None]
